FAERS Safety Report 6257374-9 (Version None)
Quarter: 2009Q3

REPORT INFORMATION
  Report Type: 
  Country: None (occurrence: None)
  Receive Date: 20090706
  Receipt Date: 20090629
  Transmission Date: 20100115
  Serious: Yes (Death, Life-Threatening, Other)
  Sender: FDA-Public Use
  Company Number: PHHY2009JP20736

PATIENT
  Sex: Male
  Weight: 70 kg

DRUGS (17)
  1. SANDIMMUNE [Suspect]
     Indication: ALLOGENIC BONE MARROW TRANSPLANTATION THERAPY
     Dosage: 180 MG DAILY
     Dates: start: 20020219, end: 20020508
  2. PREDNISOLONE [Concomitant]
     Indication: ALLOGENIC BONE MARROW TRANSPLANTATION THERAPY
     Dosage: 60 MG DAILY
     Route: 042
     Dates: start: 20020313
  3. FLUDARA [Concomitant]
     Indication: ALLOGENIC BONE MARROW TRANSPLANTATION THERAPY
     Dosage: 50 MG DAILY
     Route: 042
     Dates: start: 20020212, end: 20020216
  4. FLUDARA [Concomitant]
     Dosage: 30MG/M^2/DAY
  5. L-PAM [Concomitant]
     Dosage: 80MG/M^2
  6. ALKERAN [Concomitant]
     Indication: ALLOGENIC BONE MARROW TRANSPLANTATION THERAPY
     Dosage: 115 MG DAILY
     Route: 042
     Dates: start: 20020217, end: 20020218
  7. ALKERAN [Concomitant]
     Dosage: 40 MG DAILY
     Route: 042
     Dates: start: 20021007, end: 20021008
  8. FUNGIZONE [Concomitant]
     Indication: ANTIFUNGAL TREATMENT
     Dosage: 15 MG
     Route: 042
     Dates: start: 20020703
  9. FUNGIZONE [Concomitant]
     Dosage: UNK
     Route: 042
     Dates: end: 20020906
  10. ITRIZOLE [Concomitant]
     Dosage: 200 MG DAILY
     Route: 048
     Dates: start: 20020723, end: 20020807
  11. ANCOTIL [Concomitant]
     Dosage: 600 MG
     Route: 042
     Dates: start: 20020807, end: 20020905
  12. FLORID-F [Concomitant]
     Dosage: 1200 MG
     Route: 042
     Dates: start: 20020906
  13. MEROPENEM [Concomitant]
     Dosage: 1 G, BID
     Dates: start: 20021015
  14. AMIKACIN [Concomitant]
     Dosage: 200 MG DAILY
     Dates: start: 20021015
  15. ONCOVIN [Concomitant]
     Dosage: 0.5 MG
     Dates: start: 20020823, end: 20020825
  16. DECADRON [Concomitant]
     Dosage: 40 MG
     Route: 042
     Dates: start: 20020823, end: 20020826
  17. ADRIACIN [Concomitant]
     Dosage: 10 MG
     Route: 042
     Dates: start: 20020823, end: 20020825

REACTIONS (10)
  - ACUTE GRAFT VERSUS HOST DISEASE IN SKIN [None]
  - CANDIDA SEPSIS [None]
  - CANDIDA SEROLOGY POSITIVE [None]
  - CHRONIC GRAFT VERSUS HOST DISEASE [None]
  - MULTIPLE MYELOMA [None]
  - PANCYTOPENIA [None]
  - PLASMACYTOMA [None]
  - PYREXIA [None]
  - RENAL DISORDER [None]
  - SEPTIC SHOCK [None]
